FAERS Safety Report 7474866-5 (Version None)
Quarter: 2011Q2

REPORT INFORMATION
  Report Type: 
  Country: None (occurrence: None)
  Receive Date: 20110505
  Receipt Date: 20110505
  Transmission Date: 20111010
  Serious: Yes (Hospitalization)
  Sender: FDA-Public Use
  Company Number: 2011AP000795

PATIENT
  Age: 88 Year
  Sex: Female

DRUGS (6)
  1. ATENOLOL [Concomitant]
  2. RAMIPRIL [Suspect]
     Indication: PRODUCT USED FOR UNKNOWN INDICATION
     Dosage: 10 MG, QD, PO
     Route: 048
     Dates: start: 20110323
  3. LEVOTHYROXINE SODIUM [Concomitant]
  4. OMEPRAZOLE [Concomitant]
  5. SIMVASTATIN [Concomitant]
  6. DOXAZOSIN MESYLATE [Concomitant]

REACTIONS (3)
  - BLOOD POTASSIUM INCREASED [None]
  - ESCHERICHIA URINARY TRACT INFECTION [None]
  - RENAL FAILURE ACUTE [None]
